FAERS Safety Report 6290206-1 (Version None)
Quarter: 2009Q3

REPORT INFORMATION
  Report Type: 
  Country: None (occurrence: None)
  Receive Date: 20090730
  Receipt Date: 20090109
  Transmission Date: 20100115
  Serious: No
  Sender: FDA-Public Use
  Company Number: US-BRISTOL-MYERS SQUIBB COMPANY-14466866

PATIENT
  Age: 85 Year
  Sex: Male

DRUGS (3)
  1. COUMADIN [Suspect]
  2. CRANBERRY JUICE [Interacting]
  3. WINE [Interacting]
     Dosage: 1 DF = 4 OZ

REACTIONS (2)
  - FOOD INTERACTION [None]
  - INTERNATIONAL NORMALISED RATIO INCREASED [None]
